FAERS Safety Report 18382519 (Version 1)
Quarter: 2020Q4

REPORT INFORMATION
  Report Type: Spontaneous
  Country: US (occurrence: US)
  Receive Date: 20201014
  Receipt Date: 20201014
  Transmission Date: 20210114
  Serious: No
  Sender: FDA-Public Use
  Company Number: None

PATIENT
  Age: 55 Year
  Sex: Female
  Weight: 76.5 kg

DRUGS (3)
  1. FASLODEX [Concomitant]
     Active Substance: FULVESTRANT
  2. PIQRAY [Suspect]
     Active Substance: ALPELISIB
     Indication: BREAST CANCER
     Route: 048
     Dates: start: 20191216, end: 20201014
  3. ZOMETA [Concomitant]
     Active Substance: ZOLEDRONIC ACID

REACTIONS (1)
  - Disease progression [None]

NARRATIVE: CASE EVENT DATE: 20201014
